FAERS Safety Report 24363740 (Version 1)
Quarter: 2024Q3

REPORT INFORMATION
  Report Type: Report from Study
  Country: CA (occurrence: CA)
  Receive Date: 20240925
  Receipt Date: 20240925
  Transmission Date: 20241017
  Serious: Yes (Other)
  Sender: REGENERON
  Company Number: CA-BAYER-2024A134315

PATIENT
  Sex: Male

DRUGS (1)
  1. EYLEA [Suspect]
     Active Substance: AFLIBERCEPT
     Indication: Age-related macular degeneration
     Dosage: UNK, 40MG/ML
     Dates: start: 20230530

REACTIONS (4)
  - Surgery [Unknown]
  - Age-related macular degeneration [Unknown]
  - Visual acuity reduced [Unknown]
  - Visual acuity reduced [Unknown]

NARRATIVE: CASE EVENT DATE: 20240617
